FAERS Safety Report 20938108 (Version 1)
Quarter: 2022Q2

REPORT INFORMATION
  Report Type: Spontaneous
  Country: US (occurrence: None)
  Receive Date: 20220608
  Receipt Date: 20220608
  Transmission Date: 20220721
  Serious: No
  Sender: FDA-Public Use
  Company Number: None

PATIENT
  Age: 41 Year
  Sex: Female
  Weight: 90 kg

DRUGS (3)
  1. RYBELSUS [Suspect]
     Active Substance: SEMAGLUTIDE
     Indication: Diabetes mellitus
     Dosage: OTHER QUANTITY : 1 TABLET(S);?
     Route: 048
     Dates: start: 20220524
  2. NEBIVOLOL [Concomitant]
     Active Substance: NEBIVOLOL
  3. ATORVASTATIN [Concomitant]

REACTIONS (3)
  - Rash erythematous [None]
  - Pain [None]
  - Allodynia [None]

NARRATIVE: CASE EVENT DATE: 20220531
